FAERS Safety Report 8334009-2 (Version None)
Quarter: 2012Q2

REPORT INFORMATION
  Report Type: 
  Country: None (occurrence: None)
  Receive Date: 20120503
  Receipt Date: 20120425
  Transmission Date: 20120825
  Serious: Yes (Death, Hospitalization)
  Sender: FDA-Public Use
  Company Number: US-ROCHE-1057159

PATIENT
  Sex: Male

DRUGS (24)
  1. CARVEDILOL [Concomitant]
     Dates: start: 20110806
  2. PREVACID [Concomitant]
     Dates: start: 20110804
  3. FUROSEMIDE [Concomitant]
     Dates: start: 20111019
  4. ALPRAZOLAM [Concomitant]
     Dates: start: 20120203
  5. HYDROXYZINE [Concomitant]
     Dates: start: 20110404
  6. THYROID TAB [Concomitant]
     Dates: start: 20110806
  7. INSULIN [Concomitant]
     Dates: start: 20110803
  8. COUMADIN [Concomitant]
     Dates: start: 20111012
  9. FISH OIL [Concomitant]
     Dates: start: 20111019
  10. OXYGEN [Concomitant]
     Dates: start: 20020101
  11. ZOFRAN [Concomitant]
     Dates: start: 20110806
  12. METOPROLOL TARTRATE [Concomitant]
     Dates: start: 20111012
  13. PRAMOSONE [Concomitant]
     Dates: start: 20090811
  14. ADVAIR DISKUS 100/50 [Concomitant]
     Dates: start: 20110806
  15. CYCLOSPORINE [Suspect]
     Indication: RENAL TRANSPLANT
     Route: 048
     Dates: start: 20110704
  16. AMLACTIN [Concomitant]
     Dates: start: 20070223
  17. ASPIRIN [Concomitant]
     Dates: start: 20110806
  18. PREDNISONE [Suspect]
     Indication: RENAL TRANSPLANT
     Dates: start: 20111005
  19. SPIRIVA [Concomitant]
     Dates: start: 20110804
  20. VITAMIN D [Concomitant]
     Dates: start: 20111019
  21. MYCOPHENOLATE MOFETIL (CELLCEPT) [Suspect]
     Indication: RENAL TRANSPLANT
     Dates: start: 20110804
  22. NIZORAL [Concomitant]
     Dates: start: 20070223
  23. DOCUSATE [Concomitant]
     Dates: start: 20110806
  24. FERROUS SULFATE TAB [Concomitant]
     Dates: start: 20111019

REACTIONS (4)
  - BLOOD CREATININE INCREASED [None]
  - ACUTE RESPIRATORY FAILURE [None]
  - CELLULITIS [None]
  - ACUTE RESPIRATORY DISTRESS SYNDROME [None]
